FAERS Safety Report 24635891 (Version 1)
Quarter: 2024Q4

REPORT INFORMATION
  Report Type: Spontaneous
  Country: PL (occurrence: PL)
  Receive Date: 20241119
  Receipt Date: 20241119
  Transmission Date: 20250115
  Serious: Yes (Other)
  Sender: ROCHE
  Company Number: PL-ROCHE-10000128090

PATIENT
  Age: 45 Year
  Sex: Male

DRUGS (1)
  1. LUNSUMIO [Suspect]
     Active Substance: MOSUNETUZUMAB-AXGB
     Indication: Follicular lymphoma refractory
     Route: 065

REACTIONS (2)
  - Oral fungal infection [Unknown]
  - Oral mucosa erosion [Unknown]
